FAERS Safety Report 12378802 (Version 4)
Quarter: 2016Q4

REPORT INFORMATION
  Report Type: Report from Study
  Country: US (occurrence: US)
  Receive Date: 20160517
  Receipt Date: 20161018
  Transmission Date: 20170207
  Serious: Yes (Hospitalization)
  Sender: FDA-Public Use
  Company Number: US-ACTELION-A-US2015-116271

PATIENT
  Age: 77 Year
  Sex: Male

DRUGS (5)
  1. DILTIAZEM. [Concomitant]
     Active Substance: DILTIAZEM
  2. ADCIRCA [Concomitant]
     Active Substance: TADALAFIL
  3. ORENITRAM [Concomitant]
     Active Substance: TREPROSTINIL
  4. ADEMPAS [Concomitant]
     Active Substance: RIOCIGUAT
  5. TRACLEER [Suspect]
     Active Substance: BOSENTAN
     Indication: PULMONARY ARTERIAL HYPERTENSION
     Dosage: 125 MG, BID
     Route: 048
     Dates: start: 20061107

REACTIONS (13)
  - Nasopharyngitis [Unknown]
  - Dyspnoea [Recovering/Resolving]
  - Frequent bowel movements [Unknown]
  - Condition aggravated [Unknown]
  - Dyspnoea exertional [Unknown]
  - Flank pain [Unknown]
  - Infection [Unknown]
  - Fatigue [Unknown]
  - Pneumonia [Unknown]
  - Syncope [Unknown]
  - Abnormal dreams [Unknown]
  - Insomnia [Unknown]
  - Muscle rupture [Unknown]
